FAERS Safety Report 10336528 (Version 1)
Quarter: 2014Q3

REPORT INFORMATION
  Report Type: Spontaneous
  Country: US (occurrence: US)
  Receive Date: 20140723
  Receipt Date: 20140723
  Transmission Date: 20150326
  Serious: Yes (Other)
  Sender: FDA-Public Use
  Company Number: US-BRISTOL-MYERS SQUIBB COMPANY-20751038

PATIENT
  Age: 74 Year
  Sex: Female
  Weight: 46.26 kg

DRUGS (1)
  1. WARFARIN SODIUM. [Suspect]
     Active Substance: WARFARIN SODIUM
     Dosage: 1DF-2 MG AND 2.5MG

REACTIONS (1)
  - Transient ischaemic attack [Unknown]
